FAERS Safety Report 6848896-8 (Version None)
Quarter: 2010Q3

REPORT INFORMATION
  Report Type: 
  Country: None (occurrence: None)
  Receive Date: 20100716
  Receipt Date: 20071106
  Transmission Date: 20110219
  Serious: No
  Sender: FDA-Public Use
  Company Number: US-PFIZER INC-2007075757

PATIENT
  Sex: Male
  Weight: 70.3 kg

DRUGS (5)
  1. CHANTIX [Suspect]
     Indication: SMOKING CESSATION THERAPY
     Route: 048
     Dates: start: 20070801
  2. RANITIDINE [Concomitant]
     Route: 048
  3. NABUMETONE [Concomitant]
     Indication: ARTHRITIS
     Route: 048
  4. LOVASTATIN [Concomitant]
     Route: 048
  5. OMEPRAZOLE [Concomitant]
     Route: 048

REACTIONS (2)
  - DYSPNOEA [None]
  - FEELING ABNORMAL [None]
